FAERS Safety Report 7454616-9 (Version None)
Quarter: 2011Q2

REPORT INFORMATION
  Report Type: 
  Country: None (occurrence: None)
  Receive Date: 20110425
  Receipt Date: 20110323
  Transmission Date: 20111010
  Serious: Yes (Other)
  Sender: FDA-Public Use
  Company Number: 029901

PATIENT
  Sex: Male

DRUGS (3)
  1. CIMZIA [Suspect]
     Indication: RHEUMATOID ARTHRITIS
     Dosage: (200 MG 1X/2 WEEKS SUBCUTANEOUS)
     Route: 058
     Dates: start: 20100810, end: 20110320
  2. PLAQUENIL /00072603/ [Concomitant]
  3. METHOTREXATE [Concomitant]

REACTIONS (6)
  - PYREXIA [None]
  - FEELING ABNORMAL [None]
  - RASH [None]
  - WEIGHT DECREASED [None]
  - DECREASED APPETITE [None]
  - NIGHT SWEATS [None]
